FAERS Safety Report 12198764 (Version 1)
Quarter: 2016Q1

REPORT INFORMATION
  Report Type: Spontaneous
  Country: US (occurrence: None)
  Receive Date: 20160321
  Receipt Date: 20160321
  Transmission Date: 20160526
  Serious: Yes (Life-Threatening, Other)
  Sender: FDA-Public Use
  Company Number: None

PATIENT
  Age: 6 Year
  Sex: Male
  Weight: 28.12 kg

DRUGS (4)
  1. D-AMPHETAMINE SALT COM XR 15MG CAPS BARR [Suspect]
     Active Substance: AMPHETAMINE ASPARTATE\AMPHETAMINE SULFATE\DEXTROAMPHETAMINE SACCHARATE\DEXTROAMPHETAMINE SULFATE
     Indication: ATTENTION DEFICIT/HYPERACTIVITY DISORDER
     Dosage: 1 CAPLET ONCE DAILY TAKEN BY MOUTH
     Route: 048
     Dates: start: 20160318, end: 20160318
  2. LIQUID BENADRYL [Concomitant]
  3. CLONODINE [Concomitant]
  4. MELATONIN [Concomitant]
     Active Substance: MELATONIN

REACTIONS (5)
  - Psychotic disorder [None]
  - Paranoia [None]
  - Energy increased [None]
  - Insomnia [None]
  - Physical assault [None]

NARRATIVE: CASE EVENT DATE: 20160318
